FAERS Safety Report 6355913-0 (Version None)
Quarter: 2009Q3

REPORT INFORMATION
  Report Type: 
  Country: None (occurrence: None)
  Receive Date: 20090911
  Receipt Date: 20090911
  Transmission Date: 20100115
  Serious: Yes (Other)
  Sender: FDA-Public Use
  Company Number: None

PATIENT
  Age: 80 Year
  Sex: Female
  Weight: 83.9154 kg

DRUGS (2)
  1. AVANDARYL [Suspect]
     Indication: DIABETES MELLITUS
     Dosage: 1 TAB DAILY MOUTH
     Route: 048
     Dates: start: 20090823
  2. AVANDARYL [Suspect]
     Indication: DIABETES MELLITUS
     Dosage: 1 TAB DAILY MOUTH
     Route: 048
     Dates: start: 20090824

REACTIONS (2)
  - DIZZINESS [None]
  - VISION BLURRED [None]
